FAERS Safety Report 7129284-6 (Version None)
Quarter: 2010Q4

REPORT INFORMATION
  Report Type: 
  Country: None (occurrence: None)
  Receive Date: 20101130
  Receipt Date: 20101117
  Transmission Date: 20110411
  Serious: No
  Sender: FDA-Public Use
  Company Number: US-B.I. PHARMACEUTICALS,INC./RIDGEFIELD-2010-BP-12957BP

PATIENT
  Sex: Female

DRUGS (2)
  1. SPIRIVA [Suspect]
     Indication: EMPHYSEMA
     Dosage: 18 MCG
     Route: 055
     Dates: start: 20100929
  2. XOPENEX [Concomitant]
     Indication: PNEUMONIA
     Dosage: MDI
     Route: 055
     Dates: start: 20100501

REACTIONS (3)
  - DRY MOUTH [None]
  - DYSPHONIA [None]
  - THIRST [None]
